FAERS Safety Report 13582628 (Version 2)
Quarter: 2017Q2

REPORT INFORMATION
  Report Type: Spontaneous
  Country: US (occurrence: US)
  Receive Date: 20170525
  Receipt Date: 20170630
  Transmission Date: 20170830
  Serious: Yes (Disabling, Other)
  Sender: FDA-Public Use
  Company Number: US-PRESTIGE BRANDS -2021223

PATIENT
  Age: 67 Year
  Sex: Female
  Weight: 63.64 kg

DRUGS (1)
  1. CLEAR EYES MAXIMUM ITCHY EYE RELIEF [Suspect]
     Active Substance: GLYCERIN\NAPHAZOLINE HYDROCHLORIDE\ZINC SULFATE
     Indication: EYE IRRITATION
     Route: 047

REACTIONS (5)
  - Facial pain [Recovered/Resolved]
  - Eye irritation [Not Recovered/Not Resolved]
  - Pain [Not Recovered/Not Resolved]
  - Eye pain [Not Recovered/Not Resolved]
  - Visual impairment [Not Recovered/Not Resolved]
